FAERS Safety Report 5570712-5 (Version None)
Quarter: 2007Q4

REPORT INFORMATION
  Report Type: 
  Country: None (occurrence: None)
  Receive Date: 20071221
  Receipt Date: 20071218
  Transmission Date: 20080405
  Serious: Yes (Hospitalization)
  Sender: FDA-Public Use
  Company Number: ZA-AVENTIS-200721544GDDC

PATIENT
  Age: 51 Year
  Sex: Female

DRUGS (8)
  1. TAXOTERE [Suspect]
     Route: 041
     Dates: start: 20060606
  2. TAXOTERE [Suspect]
     Route: 042
     Dates: end: 20060905
  3. IBUPROFEN [Concomitant]
     Route: 048
     Dates: start: 20060627, end: 20061024
  4. IBUPROFEN [Concomitant]
     Route: 048
     Dates: start: 20071204, end: 20071205
  5. ZOLPIDEM [Concomitant]
     Indication: INSOMNIA
     Route: 048
     Dates: start: 20060627, end: 20061024
  6. LASIX [Concomitant]
     Route: 048
     Dates: start: 20060707, end: 20061024
  7. SLOW-K [Concomitant]
     Dosage: DOSE: 1 TAB
     Route: 048
     Dates: start: 20060824, end: 20061024
  8. SLOW-K [Concomitant]
     Route: 048
     Dates: start: 20071204, end: 20071207

REACTIONS (4)
  - CONFUSIONAL STATE [None]
  - COUGH [None]
  - OEDEMA [None]
  - SOMNOLENCE [None]
